FAERS Safety Report 23541751 (Version 1)
Quarter: 2024Q1

REPORT INFORMATION
  Report Type: Spontaneous
  Country: CA (occurrence: CA)
  Receive Date: 20240220
  Receipt Date: 20240220
  Transmission Date: 20240409
  Serious: Yes (Hospitalization, Other)
  Sender: FDA-Public Use
  Company Number: CA-MankindUS-000139

PATIENT
  Age: 7 Decade
  Sex: Female

DRUGS (1)
  1. NITROFURANTOIN [Suspect]
     Active Substance: NITROFURANTOIN
     Indication: Urinary tract infection
     Dosage: COMPLETED 5 DAYS OF A 7- DAY COURSE

REACTIONS (1)
  - Haemolysis [Recovered/Resolved]
